FAERS Safety Report 4502106-5 (Version None)
Quarter: 2004Q4

REPORT INFORMATION
  Report Type: 
  Country: None (occurrence: None)
  Receive Date: 20041116
  Receipt Date: 20041105
  Transmission Date: 20050328
  Serious: Yes (Other)
  Sender: FDA-Public Use
  Company Number: US-MERCK-0411USA00936

PATIENT
  Sex: Male

DRUGS (1)
  1. VIOXX [Suspect]
     Indication: SPINAL OSTEOARTHRITIS
     Route: 048

REACTIONS (6)
  - BARRETT'S OESOPHAGUS [None]
  - DIZZINESS [None]
  - DYSPLASIA [None]
  - DYSPNOEA [None]
  - GASTRIC ULCER [None]
  - HAEMOGLOBIN DECREASED [None]
